FAERS Safety Report 8681302 (Version 5)
Quarter: 2013Q3

REPORT INFORMATION
  Report Type: Spontaneous
  Country: JP (occurrence: JP)
  Receive Date: 20120725
  Receipt Date: 20130913
  Transmission Date: 20140515
  Serious: Yes (Hospitalization, Other)
  Sender: FDA-Public Use
  Company Number: JP-009507513-1207JPN007797

PATIENT
  Age: 73 Year
  Sex: Male

DRUGS (8)
  1. REFLEX [Suspect]
     Dosage: 30 MG, UNK
     Route: 048
  2. REFLEX [Suspect]
     Dosage: 15 MG, UNK
     Route: 048
  3. REFLEX [Suspect]
     Dosage: 30 MG, UNK
     Route: 048
  4. AMITRIPTYLINE HYDROCHLORIDE [Suspect]
     Indication: DEPRESSION
     Dosage: 50 MG, DAILY
     Route: 048
  5. AMITRIPTYLINE HYDROCHLORIDE [Suspect]
     Indication: DEPRESSION
     Dosage: 100 MG, QD
     Route: 048
  6. AMITRIPTYLINE HYDROCHLORIDE [Suspect]
     Dosage: 75 MG, DAILY
     Route: 048
  7. PAROXETINE [Concomitant]
     Dosage: 10 MG, UNK
     Route: 048
  8. SERTRALINE HYDROCHLORIDE [Concomitant]
     Dosage: 50 MG, QD

REACTIONS (3)
  - Status epilepticus [Recovering/Resolving]
  - Status epilepticus [Recovering/Resolving]
  - Electroencephalogram abnormal [Recovered/Resolved]
